FAERS Safety Report 8326097-4 (Version None)
Quarter: 2012Q2

REPORT INFORMATION
  Report Type: 
  Country: None (occurrence: None)
  Receive Date: 20120501
  Receipt Date: 20120424
  Transmission Date: 20120825
  Serious: Yes (Death, Hospitalization, Other)
  Sender: FDA-Public Use
  Company Number: FR-GLAXOSMITHKLINE-B0799096A

PATIENT
  Sex: Male

DRUGS (2)
  1. RYTHMOL [Suspect]
     Indication: EXTRASYSTOLES
     Dosage: 300MG PER DAY
     Route: 048
     Dates: end: 20120213
  2. FLUINDIONE [Suspect]
     Indication: PRODUCT USED FOR UNKNOWN INDICATION
     Dates: end: 20120209

REACTIONS (11)
  - PNEUMONIA [None]
  - VENTRICULAR EXTRASYSTOLES [None]
  - APHASIA [None]
  - HYPERTENSION [None]
  - CEREBRAL VENTRICLE DILATATION [None]
  - SEPTIC SHOCK [None]
  - ELECTROENCEPHALOGRAM ABNORMAL [None]
  - SPUTUM PURULENT [None]
  - HEMIPLEGIA [None]
  - CEREBELLAR HAEMATOMA [None]
  - PYREXIA [None]
